FAERS Safety Report 9353428 (Version 2)
Quarter: 2013Q3

REPORT INFORMATION
  Report Type: Spontaneous
  Country: US (occurrence: US)
  Receive Date: 20130618
  Receipt Date: 20130726
  Transmission Date: 20140515
  Serious: Yes (Disabling, Other)
  Sender: FDA-Public Use
  Company Number: US-PFIZER INC-2013181018

PATIENT
  Age: 59 Year
  Sex: Female

DRUGS (1)
  1. CELEBREX [Suspect]
     Dosage: UNK
     Dates: end: 201301

REACTIONS (2)
  - Arthropathy [Unknown]
  - Wheelchair user [Not Recovered/Not Resolved]
